FAERS Safety Report 6509712-7 (Version None)
Quarter: 2009Q4

REPORT INFORMATION
  Report Type: 
  Country: None (occurrence: None)
  Receive Date: 20091222
  Receipt Date: 20091214
  Transmission Date: 20100525
  Serious: Yes (Hospitalization)
  Sender: FDA-Public Use
  Company Number: CN-SANOFI-AVENTIS-2009SA008342

PATIENT
  Age: 58 Year
  Sex: Female
  Weight: 53 kg

DRUGS (6)
  1. DOCETAXEL [Suspect]
     Route: 041
     Dates: start: 20091210, end: 20091210
  2. CISPLATIN [Suspect]
     Dates: start: 20091210, end: 20091210
  3. FLUOROURACIL [Suspect]
     Dates: start: 20091210, end: 20091214
  4. DEXAMETHASONE TAB [Concomitant]
     Route: 048
  5. GRANISETRON [Concomitant]
  6. GLUCOSE [Concomitant]

REACTIONS (1)
  - HYPONATRAEMIA [None]
